FAERS Safety Report 12765826 (Version 2)
Quarter: 2017Q1

REPORT INFORMATION
  Report Type: Spontaneous
  Country: US (occurrence: US)
  Receive Date: 20160921
  Receipt Date: 20170303
  Transmission Date: 20170428
  Serious: Yes (Death, Hospitalization)
  Sender: FDA-Public Use
  Company Number: US-JNJFOC-20160910289

PATIENT
  Age: 82 Year
  Sex: Female

DRUGS (7)
  1. XARELTO [Suspect]
     Active Substance: RIVAROXABAN
     Indication: THROMBOSIS PROPHYLAXIS
     Dosage: 15/20 MG
     Route: 048
     Dates: start: 20140226, end: 20140924
  2. LOVENOX [Suspect]
     Active Substance: ENOXAPARIN SODIUM
     Indication: ARTERIAL THROMBOSIS
     Route: 065
     Dates: start: 20140219, end: 20140224
  3. XARELTO [Suspect]
     Active Substance: RIVAROXABAN
     Indication: ARTERIAL THROMBOSIS
     Dosage: 15/20 MG
     Route: 048
     Dates: start: 20140226, end: 20140924
  4. LOVENOX [Suspect]
     Active Substance: ENOXAPARIN SODIUM
     Indication: ARTERIAL THROMBOSIS
     Route: 065
     Dates: start: 20140227, end: 20140302
  5. XARELTO [Suspect]
     Active Substance: RIVAROXABAN
     Indication: ATRIAL FIBRILLATION
     Dosage: 15/20 MG
     Route: 048
     Dates: start: 20140226, end: 20140924
  6. XARELTO [Suspect]
     Active Substance: RIVAROXABAN
     Indication: ANTIPHOSPHOLIPID SYNDROME
     Dosage: 15/20 MG
     Route: 048
     Dates: start: 20140226, end: 20140924
  7. XARELTO [Suspect]
     Active Substance: RIVAROXABAN
     Indication: CEREBROVASCULAR ACCIDENT PROPHYLAXIS
     Dosage: 15/20 MG
     Route: 048
     Dates: start: 20140226, end: 20140924

REACTIONS (2)
  - Subarachnoid haemorrhage [Fatal]
  - Subdural haemorrhage [Fatal]

NARRATIVE: CASE EVENT DATE: 20140925
